FAERS Safety Report 4899286-9 (Version None)
Quarter: 2006Q1

REPORT INFORMATION
  Report Type: 
  Country: None (occurrence: None)
  Receive Date: 20060131
  Receipt Date: 20060119
  Transmission Date: 20060701
  Serious: Yes (Hospitalization)
  Sender: FDA-Public Use
  Company Number: 02100-JPN-05-0534

PATIENT
  Age: 64 Year
  Sex: Male

DRUGS (11)
  1. CILOSTAZOL [Suspect]
     Indication: STENT PLACEMENT
     Dosage: 200 MG, ORAL
     Route: 048
     Dates: start: 20050223, end: 20050311
  2. CILOSTAZOL [Suspect]
     Indication: STENT PLACEMENT
     Dosage: 200 MG, ORAL
     Route: 048
     Dates: start: 20050414, end: 20050418
  3. TICLOPIDINE HYDROCHLORIDE [Suspect]
     Dosage: 200 MG, ORAL
     Route: 048
     Dates: start: 20050125, end: 20050222
  4. ASPIRIN [Concomitant]
  5. LANSOPRAZOLE [Concomitant]
  6. ISOSORBIDE DINITRATE [Concomitant]
  7. TEMOCAPRIL HYDROCHLORIDE [Concomitant]
  8. PITAVASTATIN CALCIUM [Concomitant]
  9. MAGNESIUM OXIDE [Concomitant]
  10. NICORANDIL [Concomitant]
  11. ECABET (MONOSODIUM) [Concomitant]

REACTIONS (9)
  - ALANINE AMINOTRANSFERASE INCREASED [None]
  - ASPARTATE AMINOTRANSFERASE INCREASED [None]
  - BLOOD ALKALINE PHOSPHATASE INCREASED [None]
  - BLOOD BILIRUBIN INCREASED [None]
  - BLOOD LACTATE DEHYDROGENASE INCREASED [None]
  - CONDITION AGGRAVATED [None]
  - GAMMA-GLUTAMYLTRANSFERASE INCREASED [None]
  - JAUNDICE [None]
  - LIVER DISORDER [None]
